FAERS Safety Report 8950779 (Version 2)
Quarter: 2012Q4

REPORT INFORMATION
  Report Type: 
  Country: KR (occurrence: KR)
  Receive Date: 20121206
  Receipt Date: 20121218
  Transmission Date: 20130627
  Serious: Yes (Other)
  Sender: FDA-Public Use
  Company Number: KR-ABBOTT-12P-090-1016881-00

PATIENT
  Age: 53 Year
  Sex: Female

DRUGS (4)
  1. HUMIRA [Suspect]
     Indication: RHEUMATOID ARTHRITIS
     Route: 058
     Dates: start: 2011
  2. MULTIVITAMIN [Concomitant]
     Indication: SUPPLEMENTATION THERAPY
     Route: 048
  3. CALDIOL [Concomitant]
     Indication: OSTEOPOROSIS
  4. MEDICATION FOR RHEUMATOID ARTHRITIS [Concomitant]
     Indication: RHEUMATOID ARTHRITIS

REACTIONS (7)
  - Gingival inflammation [Not Recovered/Not Resolved]
  - Injection site pain [Recovered/Resolved]
  - Knee deformity [Not Recovered/Not Resolved]
  - Foot deformity [Recovering/Resolving]
  - Foot deformity [Recovering/Resolving]
  - Finger deformity [Unknown]
  - Wrist deformity [Unknown]
